FAERS Safety Report 5502092-5 (Version None)
Quarter: 2007Q4

REPORT INFORMATION
  Report Type: 
  Country: None (occurrence: None)
  Receive Date: 20071019
  Receipt Date: 20060926
  Transmission Date: 20080405
  Serious: Yes (Hospitalization)
  Sender: FDA-Public Use
  Company Number: PHEH2006US12196

PATIENT
  Age: 67 Year
  Sex: Female

DRUGS (3)
  1. ZOMETA [Suspect]
     Indication: BREAST CANCER METASTATIC
     Dosage: QMO, INFUSION
     Dates: start: 20060915
  2. FEMARA [Suspect]
     Indication: BREAST CANCER METASTATIC
     Dosage: 2.5 MG, QD ORAL
     Route: 048
     Dates: start: 20060901
  3. RADIATION THERAPY (NO INGREDIENTS/SUBSTANCES) [Concomitant]

REACTIONS (1)
  - PAIN IN EXTREMITY [None]
